FAERS Safety Report 11419398 (Version 2)
Quarter: 2015Q4

REPORT INFORMATION
  Report Type: Spontaneous
  Country: US (occurrence: US)
  Receive Date: 20150826
  Receipt Date: 20151203
  Transmission Date: 20160304
  Serious: Yes (Hospitalization)
  Sender: FDA-Public Use
  Company Number: US-BAYER-2015-408086

PATIENT
  Age: 25 Year
  Sex: Female
  Weight: 90.7 kg

DRUGS (1)
  1. MIRENA [Suspect]
     Active Substance: LEVONORGESTREL
     Indication: CONTRACEPTION
     Dosage: 20 MCG/24HR, CONT
     Route: 015
     Dates: start: 20080718, end: 20090818

REACTIONS (4)
  - Embedded device [None]
  - Injury [None]
  - Device difficult to use [None]
  - Pelvic pain [None]

NARRATIVE: CASE EVENT DATE: 20090818
